FAERS Safety Report 9953057 (Version 1)
Quarter: 2014Q1

REPORT INFORMATION
  Report Type: Report from Study
  Country: US (occurrence: US)
  Receive Date: 20140304
  Receipt Date: 20140304
  Transmission Date: 20141002
  Serious: No
  Sender: FDA-Public Use
  Company Number: US-ABBVIE-13P-163-1072598-00

PATIENT
  Age: 76 Year
  Sex: Female

DRUGS (3)
  1. HUMIRA [Suspect]
     Indication: PSORIASIS
     Route: 058
     Dates: start: 20130222
  2. BENICAR [Concomitant]
     Indication: HYPERTENSION
     Dosage: LOWEST DOSE DAILY
  3. ZYRTEC [Concomitant]
     Indication: SEASONAL ALLERGY
     Dosage: DAILY WHEN SUFFERING FROM ALLERGIES

REACTIONS (4)
  - Rhinorrhoea [Not Recovered/Not Resolved]
  - Seasonal allergy [Not Recovered/Not Resolved]
  - Cough [Not Recovered/Not Resolved]
  - Sneezing [Not Recovered/Not Resolved]
